FAERS Safety Report 9376762 (Version 3)
Quarter: 2013Q3

REPORT INFORMATION
  Report Type: Report from Study
  Country: DE (occurrence: DE)
  Receive Date: 20130701
  Receipt Date: 20130812
  Transmission Date: 20140515
  Serious: Yes (Hospitalization)
  Sender: FDA-Public Use
  Company Number: DE-BIOGENIDEC-2013BI058096

PATIENT
  Age: 41 Year
  Sex: Female
  Weight: 54 kg

DRUGS (3)
  1. BG00012 [Suspect]
     Indication: MULTIPLE SCLEROSIS
     Dates: start: 20101020
  2. OPIPRAMOL [Concomitant]
     Indication: SLEEP DISORDER
     Dates: start: 201306
  3. LEFAXIN [Concomitant]
     Dates: start: 201306

REACTIONS (1)
  - Rehabilitation therapy [Recovered/Resolved]
